FAERS Safety Report 5402218-8 (Version None)
Quarter: 2007Q3

REPORT INFORMATION
  Report Type: 
  Country: None (occurrence: None)
  Receive Date: 20070801
  Receipt Date: 20070726
  Transmission Date: 20080115
  Serious: Yes (Hospitalization)
  Sender: FDA-Public Use
  Company Number: SEWYE091426JUL07

PATIENT
  Sex: Male
  Weight: 86 kg

DRUGS (4)
  1. RAPAMUNE [Suspect]
     Indication: PROPHYLAXIS AGAINST TRANSPLANT REJECTION
     Route: 048
     Dates: start: 20070623, end: 20070708
  2. TRANEXAMIC ACID [Concomitant]
     Indication: MELAENA
  3. EPOGEN [Concomitant]
  4. BLOOD, WHOLE [Concomitant]
     Indication: MELAENA
     Dosage: PATIENT RECEIVED 4 UNITS OF BLOOD
     Route: 042

REACTIONS (1)
  - MELAENA [None]
